FAERS Safety Report 6406860-7 (Version None)
Quarter: 2009Q4

REPORT INFORMATION
  Report Type: 
  Country: None (occurrence: None)
  Receive Date: 20091020
  Receipt Date: 20091012
  Transmission Date: 20100525
  Serious: Yes (Other)
  Sender: FDA-Public Use
  Company Number: US-AMGEN-QUU367508

PATIENT
  Sex: Female
  Weight: 51 kg

DRUGS (12)
  1. EPOGEN [Suspect]
     Indication: DIALYSIS
     Route: 058
     Dates: start: 20090624
  2. FELODIPINE [Concomitant]
     Route: 048
  3. ATIVAN [Concomitant]
     Route: 048
  4. CLONIDINE [Concomitant]
     Route: 048
  5. COREG [Concomitant]
     Route: 048
  6. DIOVAN [Concomitant]
     Route: 048
  7. HECTORAL [Concomitant]
  8. LASIX [Concomitant]
     Route: 048
  9. NEPHRO-CAPS [Concomitant]
  10. PREDNISONE [Concomitant]
     Route: 048
  11. SEVELAMER [Concomitant]
     Route: 048
  12. SENSIPAR [Concomitant]
     Indication: DRUG USE FOR UNKNOWN INDICATION

REACTIONS (6)
  - ABDOMINAL PAIN [None]
  - COUGH [None]
  - DYSPNOEA [None]
  - HAEMOPTYSIS [None]
  - THERAPEUTIC RESPONSE DECREASED [None]
  - TRANSPLANT REJECTION [None]
